FAERS Safety Report 10245707 (Version 1)
Quarter: 2014Q2

REPORT INFORMATION
  Report Type: Report from Study
  Country: FR (occurrence: FR)
  Receive Date: 20140619
  Receipt Date: 20140619
  Transmission Date: 20141212
  Serious: Yes (Other)
  Sender: FDA-Public Use
  Company Number: FR-AMGEN-FRACT2014044481

PATIENT
  Age: 73 Year
  Sex: Male
  Weight: 65 kg

DRUGS (5)
  1. PANITUMUMAB [Suspect]
     Indication: GASTROOESOPHAGEAL CANCER
     Dosage: 312 MG, UNK
     Route: 042
     Dates: start: 20120831
  2. OXALIPLATIN [Concomitant]
     Indication: GASTROOESOPHAGEAL CANCER
     Dosage: 115 MG, UNK
     Route: 042
     Dates: start: 20120831
  3. 5-FU                               /00098801/ [Concomitant]
     Indication: GASTROOESOPHAGEAL CANCER
     Dosage: 4248 MG, UNK
     Route: 042
     Dates: start: 20120831
  4. 5-FU                               /00098801/ [Concomitant]
     Dosage: 708 MG, UNK
     Route: 040
     Dates: start: 20120831
  5. FOLINIC ACID [Concomitant]
     Indication: GASTROOESOPHAGEAL CANCER
     Dosage: 708 MG, UNK
     Route: 042
     Dates: start: 20120831

REACTIONS (1)
  - Rash [Recovered/Resolved with Sequelae]
